FAERS Safety Report 18049810 (Version 1)
Quarter: 2020Q3

REPORT INFORMATION
  Report Type: Spontaneous
  Country: US (occurrence: US)
  Receive Date: 20200721
  Receipt Date: 20200721
  Transmission Date: 20201103
  Serious: No
  Sender: FDA-Public Use
  Company Number: US-NEXGEN PHARMA, INC.-2087549

PATIENT
  Age: 58 Year
  Sex: Female

DRUGS (1)
  1. CHENODIOL? (250 MG 100 TABLETS) [Suspect]
     Active Substance: CHENODIOL
     Indication: LIPID METABOLISM DISORDER
     Route: 048
     Dates: start: 20191207

REACTIONS (1)
  - Hepatic enzyme increased [Recovered/Resolved with Sequelae]
